FAERS Safety Report 17591651 (Version 1)
Quarter: 2020Q1

REPORT INFORMATION
  Report Type: Spontaneous
  Country: US (occurrence: US)
  Receive Date: 20200327
  Receipt Date: 20200327
  Transmission Date: 20200409
  Serious: Yes (Hospitalization)
  Sender: FDA-Public Use
  Company Number: None

PATIENT
  Age: 66 Year
  Sex: Female

DRUGS (17)
  1. SIMVASTATIN. [Concomitant]
     Active Substance: SIMVASTATIN
  2. ACETAMIN [Concomitant]
     Active Substance: ACETAMINOPHEN
  3. BENEFIBER [Concomitant]
     Active Substance: STARCH, WHEAT
  4. BENADRYL [Concomitant]
     Active Substance: DIPHENHYDRAMINE HYDROCHLORIDE
  5. MIRALAX [Concomitant]
     Active Substance: POLYETHYLENE GLYCOL 3350
  6. BACLOFEN. [Concomitant]
     Active Substance: BACLOFEN
  7. AVONEX [Concomitant]
     Active Substance: INTERFERON BETA-1A
  8. ASPIRIN. [Concomitant]
     Active Substance: ASPIRIN
  9. VITAMIN E [Concomitant]
     Active Substance: .ALPHA.-TOCOPHEROL
  10. PROBIOTIC [Concomitant]
     Active Substance: PROBIOTICS NOS
  11. DOCUSATE [Concomitant]
     Active Substance: DOCUSATE
  12. GABAPENTIN. [Concomitant]
     Active Substance: GABAPENTIN
  13. DALFAMPRIDINE. [Suspect]
     Active Substance: DALFAMPRIDINE
     Indication: PLASMA CELL MYELOMA
     Route: 048
     Dates: start: 20181011
  14. VITAMIN C [Concomitant]
     Active Substance: ASCORBIC ACID
  15. TRAMADOL. [Concomitant]
     Active Substance: TRAMADOL
  16. FISH OIL [Concomitant]
     Active Substance: FISH OIL
  17. LISINOPRIL. [Concomitant]
     Active Substance: LISINOPRIL

REACTIONS (1)
  - Herpes zoster [None]

NARRATIVE: CASE EVENT DATE: 20191223
